FAERS Safety Report 19511114 (Version 1)
Quarter: 2021Q3

REPORT INFORMATION
  Report Type: Spontaneous
  Country: US (occurrence: US)
  Receive Date: 20210709
  Receipt Date: 20210709
  Transmission Date: 20211014
  Serious: Yes (Hospitalization)
  Sender: FDA-Public Use
  Company Number: None

PATIENT
  Age: 55 Year
  Sex: Male

DRUGS (3)
  1. RETACRIT [Concomitant]
     Active Substance: EPOETIN ALFA-EPBX
  2. COUMADIN [Concomitant]
     Active Substance: WARFARIN SODIUM
  3. TACROLIMUS. [Suspect]
     Active Substance: TACROLIMUS
     Indication: RENAL TRANSPLANT
     Route: 048
     Dates: start: 20140816

REACTIONS (1)
  - Hospitalisation [None]
